FAERS Safety Report 13754651 (Version 2)
Quarter: 2017Q3

REPORT INFORMATION
  Report Type: Spontaneous
  Country: US (occurrence: US)
  Receive Date: 20170714
  Receipt Date: 20170725
  Transmission Date: 20171127
  Serious: No
  Sender: FDA-Public Use
  Company Number: US-TEVA-788365ACC

PATIENT
  Sex: Female

DRUGS (1)
  1. PARAGARD T 380A [Suspect]
     Active Substance: COPPER
     Dosage: INSERTED 11.5 YEARS AGO
     Route: 065

REACTIONS (3)
  - Device breakage [Not Recovered/Not Resolved]
  - Complication associated with device [Not Recovered/Not Resolved]
  - Intentional product use issue [Unknown]
